FAERS Safety Report 19034583 (Version 1)
Quarter: 2021Q1

REPORT INFORMATION
  Report Type: Report from Study
  Country: JP (occurrence: JP)
  Receive Date: 20210320
  Receipt Date: 20210320
  Transmission Date: 20210420
  Serious: Yes (Other)
  Sender: FDA-Public Use
  Company Number: JP-CELLTRION INC.-2020JP027642

PATIENT

DRUGS (11)
  1. CT?P13 [Suspect]
     Active Substance: INFLIXIMAB-DYYB
     Dosage: 350 MG (WEIGHT: 70 KG)
     Route: 041
     Dates: start: 20201017, end: 20201017
  2. CT?P13 [Suspect]
     Active Substance: INFLIXIMAB-DYYB
     Indication: CROHN^S DISEASE
     Dosage: 350 MG (WEIGHT: 70.0 KG)
     Route: 041
     Dates: start: 20181013, end: 20181013
  3. MERCAPTOPURINE MONOHYDRATE [Concomitant]
     Active Substance: MERCAPTOPURINE
     Indication: CROHN^S DISEASE
     Dosage: 10 MG, DAILY
     Route: 048
     Dates: start: 20190223, end: 20190313
  4. CT?P13 [Suspect]
     Active Substance: INFLIXIMAB-DYYB
     Dosage: 350 MG (WEIGHT: 70.0 KG)
     Route: 041
     Dates: start: 20191012, end: 20191012
  5. MESALAZINE [Concomitant]
     Active Substance: MESALAMINE
     Dosage: 3000 MG, DAILY
     Route: 048
  6. BUDESONIDE. [Concomitant]
     Active Substance: BUDESONIDE
     Indication: CROHN^S DISEASE
     Dosage: 9 MG, DAILY
     Route: 048
     Dates: start: 20190122, end: 20190313
  7. MERCAPTOPURINE MONOHYDRATE [Concomitant]
     Active Substance: MERCAPTOPURINE
     Dosage: 10 MG, DAILY
     Route: 048
     Dates: start: 20190411
  8. CT?P13 [Suspect]
     Active Substance: INFLIXIMAB-DYYB
     Dosage: 350 MG (WEIGHT: 70 KG)
     Route: 041
     Dates: start: 20190223, end: 20190223
  9. MERCAPTOPURINE MONOHYDRATE [Concomitant]
     Active Substance: MERCAPTOPURINE
     Dosage: 20 MG, DAILY
     Route: 048
     Dates: start: 20190314, end: 20190410
  10. CT?P13 [Suspect]
     Active Substance: INFLIXIMAB-DYYB
     Dosage: 355 MG (WEIGHT: 71 KG)
     Route: 041
     Dates: start: 20181215, end: 20181215
  11. CT?P13 [Suspect]
     Active Substance: INFLIXIMAB-DYYB
     Dosage: 355 MG (WEIGHT: 70.9 KG)
     Route: 041
     Dates: start: 20190411, end: 20190411

REACTIONS (6)
  - Colitis [Recovered/Resolved]
  - Product use issue [Unknown]
  - Nausea [Recovered/Resolved]
  - Cholecystitis [Recovered/Resolved]
  - Influenza [Recovered/Resolved]
  - Sudden hearing loss [Recovered/Resolved]

NARRATIVE: CASE EVENT DATE: 20190115
